FAERS Safety Report 9293941 (Version 1)
Quarter: 2013Q1

REPORT INFORMATION
  Report Type: Spontaneous
  Country: US (occurrence: None)
  Receive Date: 20121214
  Receipt Date: 20121214
  Transmission Date: 20140127
  Serious: Yes (Hospitalization, Other)
  Sender: FDA-Public Use
  Company Number: 1207USA010238

PATIENT
  Sex: Male

DRUGS (14)
  1. JANUVIA (SITAGLIPTIN PHOSPHATE) FILM-COATED TABLET, 50MG [Suspect]
     Route: 048
  2. ASCORBIC ACID (ASCORBIC ACID) [Concomitant]
  3. ASPIRIN (ASPIRIN) [Concomitant]
  4. CHOLECALCIFEROL (CHOLECALCIFEROL) [Concomitant]
  5. DOCUSATE SODIUM (DOCUSATE SODIUM) [Concomitant]
  6. SPIRONOLACTONE (SPIRONOLACTONE) [Concomitant]
  7. HYDRICHLORTHIAZIDE (HYDROCHLOROTHIAZIDE) [Concomitant]
  8. INDOMETHACIN (INDOMETHACIN) [Concomitant]
  9. LISINOPRIL (LISINOPRIL) [Concomitant]
  10. VITAMINS (UNSPECIFIED) (VITAMINS UNSPECIFIED) [Concomitant]
  11. SERTRALINE HYDROCHLORIDE (SERTRALINE HYDROCHLORIDE) [Concomitant]
  12. SIMVASTATIN (SIMVASTATIN) [Concomitant]
  13. ALOOPPURINOL (ALLOPURINOL) [Concomitant]
  14. ADVAIR (FLUTICASONE PROPIONAET, SALMETEROL XINAFOATE) [Concomitant]

REACTIONS (1)
  - Pancreatitis acute [None]
